FAERS Safety Report 16673925 (Version 1)
Quarter: 2019Q3

REPORT INFORMATION
  Report Type: Spontaneous
  Country: US (occurrence: US)
  Receive Date: 20190621
  Receipt Date: 20190621
  Transmission Date: 20191004
  Serious: Yes (Hospitalization)
  Sender: FDA-Public Use
  Company Number: None

PATIENT
  Age: 54 Year
  Sex: 0

DRUGS (5)
  1. XHANCE [Concomitant]
     Active Substance: FLUTICASONE PROPIONATE
  2. GLATIRAMER 40MG/ML [Suspect]
     Active Substance: GLATIRAMER
     Indication: MULTIPLE SCLEROSIS
     Route: 058
     Dates: start: 20180206
  3. CALCIUM [Concomitant]
     Active Substance: CALCIUM
  4. CENTRUM [Concomitant]
     Active Substance: VITAMINS
  5. AZELASTINE. [Concomitant]
     Active Substance: AZELASTINE HYDROCHLORIDE

REACTIONS (2)
  - Dizziness [None]
  - Chills [None]

NARRATIVE: CASE EVENT DATE: 20190619
